FAERS Safety Report 9767626 (Version 1)
Quarter: 2013Q4

REPORT INFORMATION
  Report Type: Spontaneous
  Country: US (occurrence: US)
  Receive Date: 20131217
  Receipt Date: 20131217
  Transmission Date: 20140711
  Serious: Yes (Other)
  Sender: FDA-Public Use
  Company Number: US-ACTAVIS-2013-22566

PATIENT
  Age: 59 Year
  Sex: Female
  Weight: 88 kg

DRUGS (1)
  1. NORCO (UNKNOWN) (WATSON LABORATORIES) [Suspect]
     Indication: HEADACHE
     Dosage: 1 DF, 6-8H
     Route: 048
     Dates: start: 20130803, end: 20130803

REACTIONS (2)
  - Hallucination, visual [Recovered/Resolved]
  - Delusion [Recovered/Resolved]
